FAERS Safety Report 18718282 (Version 2)
Quarter: 2022Q1

REPORT INFORMATION
  Report Type: Spontaneous
  Country: US (occurrence: US)
  Receive Date: 20210108
  Receipt Date: 20220106
  Transmission Date: 20220423
  Serious: Yes (Hospitalization)
  Sender: FDA-Public Use
  Company Number: US-AMNEAL PHARMACEUTICALS-2020-AMRX-03587

PATIENT
  Age: 47 Year
  Sex: Female

DRUGS (14)
  1. ACTIVELLA [Suspect]
     Active Substance: ESTRADIOL\NORETHINDRONE ACETATE
     Indication: Uterine leiomyoma
     Dosage: 1 DOSAGE FORM, QD
     Route: 048
     Dates: start: 20190703, end: 20200605
  2. ACTIVELLA [Suspect]
     Active Substance: ESTRADIOL\NORETHINDRONE ACETATE
     Dosage: 1 TABLETS, DAILY
     Route: 048
     Dates: start: 20200606, end: 20200929
  3. ACTIVELLA [Suspect]
     Active Substance: ESTRADIOL\NORETHINDRONE ACETATE
     Dosage: 1 TABLETS, DAILY
     Route: 048
     Dates: start: 20201001
  4. ELAGOLIX [Suspect]
     Active Substance: ELAGOLIX
     Indication: Uterine leiomyoma
     Dosage: 300 MILLIGRAM, QD
     Route: 048
     Dates: start: 20190703, end: 20200605
  5. ELAGOLIX [Suspect]
     Active Substance: ELAGOLIX
     Dosage: 300 MILLIGRAM, DAILY
     Route: 048
     Dates: start: 20200606, end: 20200929
  6. ELAGOLIX [Suspect]
     Active Substance: ELAGOLIX
     Dosage: 300 MILLIGRAM, DAILY
     Route: 048
     Dates: start: 20201001
  7. AMLODIPINE BESYLATE\BENAZEPRIL HYDROCHLORIDE [Suspect]
     Active Substance: AMLODIPINE BESYLATE\BENAZEPRIL HYDROCHLORIDE
     Indication: Hypertension
     Dosage: 10-20 MG DAILY
     Route: 048
     Dates: start: 20191024, end: 20200930
  8. FERROUS SULFATE ANHYDROUS [Concomitant]
     Active Substance: FERROUS SULFATE ANHYDROUS
     Indication: Anaemia
     Dosage: 325 MILLIGRAM, TID
     Route: 048
     Dates: start: 20190703
  9. DOCUSATE SODIUM [Concomitant]
     Active Substance: DOCUSATE SODIUM
     Indication: Constipation prophylaxis
     Dosage: 100 MILLIGRAM, AS NEEDED
     Route: 048
     Dates: start: 20190703
  10. CLARITIN [Concomitant]
     Active Substance: LORATADINE
     Indication: Seasonal allergy
     Dosage: 1 TABLETS AS NEEDED
     Route: 048
     Dates: start: 201909
  11. HYDROCHLOROTHIAZIDE [Concomitant]
     Active Substance: HYDROCHLOROTHIAZIDE
     Indication: Hypertension
     Dosage: 25 MILLIGRAM, DAILY
     Route: 048
     Dates: start: 20191024
  12. VITAMIN D NOS [Concomitant]
     Active Substance: VITAMIN D NOS
     Indication: Vitamin D deficiency
     Dosage: 5000 INTERNATIONAL UNIT, DAILY
     Route: 048
     Dates: start: 20200425
  13. PROCARDIA [Concomitant]
     Active Substance: NIFEDIPINE
     Indication: Hypertension
     Dosage: 60 MILLIGRAM, 2X/DAY
     Route: 048
     Dates: start: 20201002
  14. METFORMIN [Concomitant]
     Active Substance: METFORMIN HYDROCHLORIDE
     Indication: Type 2 diabetes mellitus
     Dosage: 750 MILLIGRAM, 2X/DAY
     Route: 048
     Dates: start: 20201002

REACTIONS (1)
  - Angioedema [Recovered/Resolved]

NARRATIVE: CASE EVENT DATE: 20200930
